FAERS Safety Report 12578880 (Version 1)
Quarter: 2016Q3

REPORT INFORMATION
  Report Type: Spontaneous
  Country: US (occurrence: US)
  Receive Date: 20160721
  Receipt Date: 20160721
  Transmission Date: 20161109
  Serious: No
  Sender: FDA-Public Use
  Company Number: US-PFIZER INC-2016347212

PATIENT
  Age: 79 Year
  Sex: Female

DRUGS (2)
  1. CELECOXIB. [Suspect]
     Active Substance: CELECOXIB
     Dosage: 200MG, CAPSULE, ONCE DAILY WITH FOOD
  2. LEVOTHYROXINE. [Concomitant]
     Active Substance: LEVOTHYROXINE
     Indication: THYROID DISORDER
     Dosage: 50 UG, 1X/DAY (50 MCG, TABLET, ONCE DAILY)

REACTIONS (4)
  - Pain [Unknown]
  - Condition aggravated [Unknown]
  - Back disorder [Unknown]
  - Faeces discoloured [Recovered/Resolved]
